FAERS Safety Report 6874804-X (Version None)
Quarter: 2010Q3

REPORT INFORMATION
  Report Type: 
  Country: None (occurrence: None)
  Receive Date: 20100723
  Receipt Date: 20100709
  Transmission Date: 20110219
  Serious: Yes (Death, Hospitalization, Other)
  Sender: FDA-Public Use
  Company Number: DSA_43477_2010

PATIENT
  Age: 49 Year
  Sex: Female

DRUGS (3)
  1. ENALAPRIL MALEATE [Suspect]
     Indication: HYPERTENSION
     Dosage: (DF ORAL)
     Route: 048
     Dates: start: 20010801
  2. ENALAPRIL MALEATE [Suspect]
     Indication: PROTEIN URINE
     Dosage: (DF ORAL)
     Route: 048
     Dates: start: 20010801
  3. VALSARTAN [Suspect]
     Indication: PROTEIN URINE
     Dosage: (DF ORAL)
     Route: 048

REACTIONS (8)
  - AUTOIMMUNE THYROIDITIS [None]
  - FATIGUE [None]
  - FOCAL SEGMENTAL GLOMERULOSCLEROSIS [None]
  - LIGHT CHAIN DISEASE [None]
  - NORMOCHROMIC NORMOCYTIC ANAEMIA [None]
  - RENAL FAILURE CHRONIC [None]
  - RENAL INJURY [None]
  - TACHYCARDIA [None]
